FAERS Safety Report 7472504-9 (Version None)
Quarter: 2011Q2

REPORT INFORMATION
  Report Type: 
  Country: None (occurrence: None)
  Receive Date: 20110511
  Receipt Date: 20110504
  Transmission Date: 20111010
  Serious: Yes (Other)
  Sender: FDA-Public Use
  Company Number: FR-SANOFI-AVENTIS-2011SA005863

PATIENT
  Age: 60 Year
  Sex: Female

DRUGS (5)
  1. KETEK [Suspect]
     Indication: BRONCHOPNEUMOPATHY
     Route: 048
     Dates: start: 20110115, end: 20110119
  2. SEROPLEX [Concomitant]
     Route: 065
  3. CHONDROSULF [Concomitant]
     Route: 048
  4. CEPHALOSPORINS AND RELATED SUBSTANCES [Concomitant]
     Route: 065
  5. SERETIDE [Concomitant]
     Indication: ASTHMA
     Route: 055

REACTIONS (1)
  - HEPATITIS [None]
